FAERS Safety Report 13611226 (Version 1)
Quarter: 2017Q2

REPORT INFORMATION
  Report Type: Spontaneous
  Country: US (occurrence: US)
  Receive Date: 20170605
  Receipt Date: 20170605
  Transmission Date: 20170830
  Serious: No
  Sender: FDA-Public Use
  Company Number: US-009507513-1705USA008999

PATIENT
  Sex: Male

DRUGS (3)
  1. REBETOL [Suspect]
     Active Substance: RIBAVIRIN
     Dosage: 3 PILLS 2 TIMES A DAY
     Route: 048
     Dates: end: 2017
  2. ZEPATIER [Suspect]
     Active Substance: ELBASVIR\GRAZOPREVIR
     Indication: HEPATITIS C
     Dosage: 1 TABLET (100/50 MG) EVERY DAY
     Route: 048
     Dates: start: 201704
  3. REBETOL [Suspect]
     Active Substance: RIBAVIRIN
     Dosage: 2 PILLS 2 TIMES A DAY
     Route: 048
     Dates: start: 2017

REACTIONS (5)
  - Chest pain [Unknown]
  - White blood cell count decreased [Unknown]
  - Fatigue [Unknown]
  - Blood pressure decreased [Unknown]
  - Dyspnoea [Unknown]

NARRATIVE: CASE EVENT DATE: 2017
